FAERS Safety Report 12760398 (Version 1)
Quarter: 2016Q3

REPORT INFORMATION
  Report Type: Spontaneous
  Country: FR (occurrence: FR)
  Receive Date: 20160919
  Receipt Date: 20160919
  Transmission Date: 20161109
  Serious: Yes (Other)
  Sender: FDA-Public Use
  Company Number: FR-009507513-1609FRA006269

PATIENT
  Age: 91 Year
  Sex: Female

DRUGS (4)
  1. SINEMET [Suspect]
     Active Substance: CARBIDOPA\LEVODOPA
     Dosage: STRENGTH REFERRED AS 250MG/25MG / 1 DF
     Route: 048
     Dates: start: 20160819
  2. KARDEGIC [Suspect]
     Active Substance: ASPIRIN LYSINE
     Dosage: 1 TABLET OF 75 MG
     Route: 048
     Dates: start: 20160819
  3. STABLON [Suspect]
     Active Substance: TIANEPTINE
     Dosage: 1 TABLET OF 12.5 MG
     Route: 048
     Dates: start: 20160819
  4. BISOCE [Suspect]
     Active Substance: BISOPROLOL
     Dosage: 1 TABLET OF 1.25MG

REACTIONS (3)
  - Hypotension [Recovered/Resolved]
  - Wrong patient received medication [Recovered/Resolved]
  - Medication error [Recovered/Resolved]

NARRATIVE: CASE EVENT DATE: 20160819
